FAERS Safety Report 6919005-1 (Version None)
Quarter: 2010Q3

REPORT INFORMATION
  Report Type: 
  Country: None (occurrence: None)
  Receive Date: 20100811
  Receipt Date: 20100728
  Transmission Date: 20110219
  Serious: Yes (Hospitalization, Disabling, Other)
  Sender: FDA-Public Use
  Company Number: US-ELI_LILLY_AND_COMPANY-US_0509122330

PATIENT
  Sex: Female

DRUGS (4)
  1. ZYPREXA [Suspect]
     Indication: ANXIETY
     Dosage: UNK, UNKNOWN
     Dates: start: 19980101
  2. TEGRETOL [Concomitant]
  3. LAMICTAL [Concomitant]
  4. FOLIC ACID [Concomitant]

REACTIONS (14)
  - BLOOD GLUCOSE INCREASED [None]
  - CONVULSION [None]
  - DIABETES MELLITUS [None]
  - DIABETIC FOOT [None]
  - DIABETIC KETOACIDOSIS [None]
  - GASTRITIS [None]
  - GLYCOSYLATED HAEMOGLOBIN INCREASED [None]
  - HYPOAESTHESIA [None]
  - INFERTILITY [None]
  - LIMB DISCOMFORT [None]
  - LOSS OF CONSCIOUSNESS [None]
  - PANCREATITIS [None]
  - PROTEIN URINE [None]
  - TINEA PEDIS [None]
